FAERS Safety Report 7349571-6 (Version None)
Quarter: 2011Q1

REPORT INFORMATION
  Report Type: 
  Country: None (occurrence: None)
  Receive Date: 20110209
  Receipt Date: 20110209
  Transmission Date: 20110831
  Serious: Yes (Other)
  Sender: FDA-Public Use
  Company Number: None

PATIENT
  Sex: Female
  Weight: 58.9676 kg

DRUGS (1)
  1. TYLONAL P.M. 2 TABLETS TAKEN ONCE BY MOUTH [Suspect]
     Dosage: ONCE IN LATER PART OF FEB. 2011

REACTIONS (1)
  - TREMOR [None]
